FAERS Safety Report 4427061-8 (Version None)
Quarter: 2004Q3

REPORT INFORMATION
  Report Type: 
  Country: None (occurrence: None)
  Receive Date: 20040811
  Receipt Date: 20040727
  Transmission Date: 20050211
  Serious: Yes (Other)
  Sender: FDA-Public Use
  Company Number: USA040567889

PATIENT
  Age: 6 Year
  Sex: Male
  Weight: 23 kg

DRUGS (1)
  1. STRATTERA [Suspect]
     Indication: ATTENTION DEFICIT/HYPERACTIVITY DISORDER
     Dosage: 40 MG/ 1 DAY
     Dates: start: 20040112

REACTIONS (6)
  - BODY TEMPERATURE DECREASED [None]
  - EYE MOVEMENT DISORDER [None]
  - LETHARGY [None]
  - MUSCLE TWITCHING [None]
  - PETIT MAL EPILEPSY [None]
  - VOMITING [None]
